FAERS Safety Report 5189062-4 (Version None)
Quarter: 2006Q4

REPORT INFORMATION
  Report Type: 
  Country: None (occurrence: None)
  Receive Date: 20061215
  Receipt Date: 20061213
  Transmission Date: 20070319
  Serious: Yes (Other)
  Sender: FDA-Public Use
  Company Number: CED-AE-06-005

PATIENT
  Age: 15 Year
  Sex: Female

DRUGS (1)
  1. METHIMAZOLE [Suspect]
     Indication: HYPERTHYROIDISM

REACTIONS (9)
  - ANTINEUTROPHIL CYTOPLASMIC ANTIBODY POSITIVE [None]
  - ANTINUCLEAR ANTIBODY POSITIVE [None]
  - BLOOD BLISTER [None]
  - ESCHAR [None]
  - LEUKOCYTOCLASTIC VASCULITIS [None]
  - MALAISE [None]
  - PYREXIA [None]
  - SKIN NECROSIS [None]
  - URTICARIA [None]
